FAERS Safety Report 17318724 (Version 1)
Quarter: 2020Q1

REPORT INFORMATION
  Report Type: Other
  Country: US (occurrence: US)
  Receive Date: 20200124
  Receipt Date: 20200124
  Transmission Date: 20200409
  Serious: Yes (Death)
  Sender: FDA-Public Use
  Company Number: US-GENUS_LIFESCIENCES-USA-POI0580202000161

PATIENT
  Age: 54 Year
  Sex: Male

DRUGS (4)
  1. HYDROGEN PEROXIDE. [Suspect]
     Active Substance: HYDROGEN PEROXIDE
     Indication: PRODUCT USED FOR UNKNOWN INDICATION
     Dates: end: 2018
  2. LEVOLET (LEVOTHYROXINE SODIUM) [Suspect]
     Active Substance: LEVOTHYROXINE SODIUM
     Indication: PRODUCT USED FOR UNKNOWN INDICATION
     Dates: end: 2018
  3. CALAMINE [Suspect]
     Active Substance: CALAMINE\FERRIC OXIDE RED\ZINC OXIDE
     Indication: PRODUCT USED FOR UNKNOWN INDICATION
     Dates: end: 2018
  4. ACETAMINOPHEN. [Suspect]
     Active Substance: ACETAMINOPHEN
     Indication: PRODUCT USED FOR UNKNOWN INDICATION
     Dates: end: 2018

REACTIONS (3)
  - Cardiac arrest [Fatal]
  - Respiratory arrest [Fatal]
  - Toxicity to various agents [Fatal]

NARRATIVE: CASE EVENT DATE: 2018
